FAERS Safety Report 4510792-9 (Version None)
Quarter: 2004Q4

REPORT INFORMATION
  Report Type: 
  Country: None (occurrence: None)
  Receive Date: 20041122
  Receipt Date: 20041109
  Transmission Date: 20050328
  Serious: Yes (Death)
  Sender: FDA-Public Use
  Company Number: 041118-0000489

PATIENT
  Age: 71 Year
  Sex: Male

DRUGS (4)
  1. PENTOBARBITAL SODIUM (PENTOBARBITAL SODIUM) [Suspect]
  2. TRIAZOLAM [Suspect]
  3. AMITRIPTYLINE HCL [Suspect]
  4. BROMAZEPAM (BROMAZEPAM) [Suspect]

REACTIONS (5)
  - ALCOHOL USE [None]
  - CARBOXYHAEMOGLOBIN INCREASED [None]
  - COMPLETED SUICIDE [None]
  - DRUG TOXICITY [None]
  - MULTIPLE DRUG OVERDOSE [None]
